FAERS Safety Report 8310745-9 (Version None)
Quarter: 2012Q2

REPORT INFORMATION
  Report Type: 
  Country: None (occurrence: None)
  Receive Date: 20120425
  Receipt Date: 20120416
  Transmission Date: 20120825
  Serious: Yes (Other)
  Sender: FDA-Public Use
  Company Number: US-JNJFOC-20120407655

PATIENT
  Sex: Female

DRUGS (19)
  1. VICODIN ES [Suspect]
     Indication: NECK PAIN
     Dosage: TAKE 1 TAB BY MOUTH EVERY 4-6 HOURS
     Route: 065
  2. ZITHROMAX [Concomitant]
     Dosage: TAKE 1 TAB BY MOUTH DAILY TAKE 2 PILLS ON THE FIRST DAY AND 1 PILL EACH DAY FOR 4 DAYS
     Route: 048
  3. ZOVIRAX [Concomitant]
     Dosage: FOR TEN DAYS PER OUTBREAK.
     Route: 048
  4. RHINOCORT [Concomitant]
     Route: 045
  5. ROBITUSSIN AC [Concomitant]
     Indication: COUGH
     Route: 048
  6. VENTOLIN [Concomitant]
     Indication: COUGH
     Route: 055
  7. EFFEXOR [Concomitant]
     Route: 048
  8. SOMA [Concomitant]
     Indication: MUSCLE SPASMS
     Route: 048
  9. LOTRIMIN [Concomitant]
     Route: 061
  10. AMITIZA [Concomitant]
     Route: 048
  11. BACTROBAN [Concomitant]
     Dosage: TID X 1 WEEK
     Route: 061
  12. BISACODYL [Concomitant]
     Route: 048
  13. LYRICA [Concomitant]
     Dosage: 2 TABS IN THE AM, 1 IN THE PM
     Route: 048
  14. SEROQUEL [Concomitant]
     Route: 048
  15. DURAGESIC-100 [Suspect]
     Indication: NECK PAIN
     Route: 062
  16. LIDODERM [Concomitant]
     Dosage: DAILY 12 HOURS ON AND 12 HOURS OFF
     Route: 062
  17. KLONOPIN [Concomitant]
     Route: 048
  18. NEXIUM [Concomitant]
     Route: 048
  19. KENALOG [Concomitant]
     Route: 050

REACTIONS (3)
  - PAIN [None]
  - DIARRHOEA [None]
  - BRONCHITIS [None]
